FAERS Safety Report 10406979 (Version 1)
Quarter: 2014Q3

REPORT INFORMATION
  Report Type: Spontaneous
  Country: US (occurrence: None)
  Receive Date: 20140822
  Receipt Date: 20140822
  Transmission Date: 20150326
  Serious: Yes (Hospitalization, Disabling)
  Sender: FDA-Public Use
  Company Number: None

PATIENT
  Age: 57 Year
  Sex: Female

DRUGS (1)
  1. INVEGA [Suspect]
     Active Substance: PALIPERIDONE
     Indication: SCHIZOAFFECTIVE DISORDER
     Dosage: 1 PILL  1 DAILY BY MOUTH
     Route: 048
     Dates: start: 20130327

REACTIONS (3)
  - Legal problem [None]
  - Impaired driving ability [None]
  - Mental status changes [None]

NARRATIVE: CASE EVENT DATE: 20130612
